FAERS Safety Report 22241880 (Version 3)
Quarter: 2023Q2

REPORT INFORMATION
  Report Type: Report from Study
  Country: NO (occurrence: NO)
  Receive Date: 20230421
  Receipt Date: 20230608
  Transmission Date: 20230722
  Serious: Yes (Death, Life-Threatening, Hospitalization)
  Sender: FDA-Public Use
  Company Number: NO-002147023-NVSC2022NO292415

PATIENT
  Age: 49 Year
  Sex: Male

DRUGS (24)
  1. PIQRAY [Suspect]
     Active Substance: ALPELISIB
     Indication: Neoplasm malignant
     Dosage: 300 MG
     Route: 065
     Dates: start: 20221007, end: 20221103
  2. PIQRAY [Suspect]
     Active Substance: ALPELISIB
     Dosage: 300 MG
     Route: 065
     Dates: start: 20221104, end: 20221201
  3. OXYCONTIN [Concomitant]
     Active Substance: OXYCODONE HYDROCHLORIDE
     Indication: Pain
     Dosage: 100 MG
     Route: 065
     Dates: start: 20211123, end: 20221007
  4. OXYCONTIN [Concomitant]
     Active Substance: OXYCODONE HYDROCHLORIDE
     Dosage: 80 MG
     Route: 065
     Dates: start: 20221008, end: 20221104
  5. OXYCONTIN [Concomitant]
     Active Substance: OXYCODONE HYDROCHLORIDE
     Dosage: 60 MG
     Route: 065
     Dates: start: 20221105, end: 20221116
  6. OXYCONTIN [Concomitant]
     Active Substance: OXYCODONE HYDROCHLORIDE
     Dosage: UNK
     Route: 065
     Dates: start: 202211, end: 20221125
  7. OXYCODONE HYDROCHLORIDE [Concomitant]
     Active Substance: OXYCODONE HYDROCHLORIDE
     Indication: Pain
     Dosage: 20 MG
     Route: 065
     Dates: start: 20190715, end: 20221125
  8. MOVICOL [Concomitant]
     Active Substance: POLYETHYLENE GLYCOL 3350\POTASSIUM CHLORIDE\SODIUM BICARBONATE\SODIUM CHLORIDE
     Indication: Constipation
     Dosage: 1 OTHER
     Route: 065
     Dates: start: 20211122
  9. SODIUM PICOSULFATE [Concomitant]
     Active Substance: SODIUM PICOSULFATE
     Indication: Constipation
     Dosage: 10-20
     Route: 065
     Dates: start: 2018, end: 20221207
  10. SELEXID [Concomitant]
     Indication: Urinary tract infection
     Dosage: 200 MG
     Route: 065
     Dates: start: 20221104, end: 20221108
  11. ACETAMINOPHEN [Concomitant]
     Active Substance: ACETAMINOPHEN
     Indication: Pain
     Dosage: 1 G
     Route: 065
     Dates: start: 20221117
  12. ZOLPIDEM TARTRATE [Concomitant]
     Active Substance: ZOLPIDEM TARTRATE
     Indication: Insomnia
     Dosage: 10 MG
     Route: 065
     Dates: start: 20221117
  13. CEFUROXIME [Concomitant]
     Active Substance: CEFUROXIME
     Indication: Infection
     Dosage: 1.5 G
     Route: 065
     Dates: start: 20221117, end: 20221118
  14. CEFUROXIME [Concomitant]
     Active Substance: CEFUROXIME
     Dosage: 1.5 G
     Route: 065
     Dates: start: 20221122, end: 20221129
  15. BACTRIM [Concomitant]
     Active Substance: SULFAMETHOXAZOLE\TRIMETHOPRIM
     Indication: Infection
     Dosage: 400 MG
     Route: 065
     Dates: start: 20221121, end: 20221122
  16. VALIUM [Concomitant]
     Active Substance: DIAZEPAM
     Indication: Mental disorder
     Dosage: 5 MG
     Route: 065
     Dates: start: 20221118
  17. VALIUM [Concomitant]
     Active Substance: DIAZEPAM
     Dosage: 2.5 MG
     Route: 065
     Dates: start: 20221119
  18. MORFIN [Concomitant]
     Indication: Pain
     Dosage: 5 MG
     Route: 065
     Dates: start: 20221124
  19. MORFIN [Concomitant]
     Indication: Dyspnoea
     Dosage: UNK
     Route: 065
     Dates: start: 20221125
  20. MIDAZOLAM [Concomitant]
     Active Substance: MIDAZOLAM
     Indication: Mental disorder
     Dosage: 1-2 MG
     Route: 065
     Dates: start: 20221124
  21. MIDAZOLAM [Concomitant]
     Active Substance: MIDAZOLAM
     Indication: Pain
     Dosage: UNK
     Route: 065
     Dates: start: 20221125
  22. BUTYLSCOPOLAMINE BROMIDE [Concomitant]
     Active Substance: BUTYLSCOPOLAMINE BROMIDE
     Indication: Bladder spasm
     Dosage: 20 MG
     Route: 065
     Dates: start: 20221125
  23. BUTYLSCOPOLAMINE BROMIDE [Concomitant]
     Active Substance: BUTYLSCOPOLAMINE BROMIDE
     Indication: Pain
  24. KETALAR [Concomitant]
     Active Substance: KETAMINE HYDROCHLORIDE
     Indication: Pain
     Dosage: UNK
     Route: 065
     Dates: start: 20221125

REACTIONS (2)
  - Haematuria [Fatal]
  - Platelet count decreased [Not Recovered/Not Resolved]

NARRATIVE: CASE EVENT DATE: 20221103
